FAERS Safety Report 7008417-6 (Version None)
Quarter: 2010Q3

REPORT INFORMATION
  Report Type: 
  Country: None (occurrence: None)
  Receive Date: 20100721
  Receipt Date: 20100603
  Transmission Date: 20110219
  Serious: No
  Sender: FDA-Public Use
  Company Number: LMI-2010-00485(0)

PATIENT
  Age: 35 Year
  Sex: Male
  Weight: 74.8435 kg

DRUGS (2)
  1. ABLAVAR [Suspect]
     Indication: MARFAN'S SYNDROME
     Dosage: 9 ML VIA POWER INFUSION FOLLOWED BY 25 ML SALINE FLUSH, INTRAVENOUS
     Route: 042
     Dates: start: 20100603, end: 20100603
  2. ABLAVAR [Suspect]
     Indication: NUCLEAR MAGNETIC RESONANCE IMAGING
     Dosage: 9 ML VIA POWER INFUSION FOLLOWED BY 25 ML SALINE FLUSH, INTRAVENOUS
     Route: 042
     Dates: start: 20100603, end: 20100603

REACTIONS (1)
  - NAUSEA [None]
